FAERS Safety Report 8463125-X (Version None)
Quarter: 2012Q2

REPORT INFORMATION
  Report Type: 
  Country: None (occurrence: None)
  Receive Date: 20120323
  Receipt Date: 20110922
  Transmission Date: 20120825
  Serious: Yes (Other)
  Sender: FDA-Public Use
  Company Number: 163-21880-11092866

PATIENT
  Age: 62 Year
  Sex: Female
  Weight: 42.6381 kg

DRUGS (6)
  1. LOVAZA [Concomitant]
  2. CYMBALTA [Concomitant]
  3. REVLIMID [Suspect]
     Indication: MULTIPLE MYELOMA
     Dosage: 25 MG, 1 IN 1 D, PO
     Route: 048
     Dates: start: 20100101
  4. ASPIRIN [Concomitant]
  5. VITAMIN D [Concomitant]
  6. DEXAMETHASONE [Concomitant]

REACTIONS (2)
  - WEIGHT DECREASED [None]
  - NASOPHARYNGITIS [None]
